FAERS Safety Report 17116548 (Version 2)
Quarter: 2020Q4

REPORT INFORMATION
  Report Type: Spontaneous
  Country: US (occurrence: US)
  Receive Date: 20191205
  Receipt Date: 20201019
  Transmission Date: 20210113
  Serious: Yes (Disabling)
  Sender: FDA-Public Use
  Company Number: US-TEVA-2019-US-1146243

PATIENT
  Age: 65 Year
  Sex: Female

DRUGS (6)
  1. HERCEPTIN [Concomitant]
     Active Substance: TRASTUZUMAB
  2. CARBOPLATIN. [Concomitant]
     Active Substance: CARBOPLATIN
  3. ATENOLOL. [Concomitant]
     Active Substance: ATENOLOL
     Dates: start: 1988
  4. DOCETAXEL. [Suspect]
     Active Substance: DOCETAXEL
     Indication: BREAST CANCER FEMALE
     Dosage: DOSAGE: 144MG, NUMBER OF CYCLES: 06, FREQUENCY: EVERY THREE WEEKS
     Route: 065
     Dates: start: 20140227, end: 20140612
  5. ADVAIR HFA [Concomitant]
     Active Substance: FLUTICASONE PROPIONATE\SALMETEROL XINAFOATE
  6. PERJETA [Concomitant]
     Active Substance: PERTUZUMAB

REACTIONS (4)
  - Hair texture abnormal [Not Recovered/Not Resolved]
  - Madarosis [Not Recovered/Not Resolved]
  - Hair colour changes [Not Recovered/Not Resolved]
  - Alopecia [Not Recovered/Not Resolved]

NARRATIVE: CASE EVENT DATE: 20140327
